FAERS Safety Report 9377771 (Version 1)
Quarter: 2013Q3

REPORT INFORMATION
  Report Type: Spontaneous
  Country: US (occurrence: US)
  Receive Date: 20130701
  Receipt Date: 20130701
  Transmission Date: 20140515
  Serious: No
  Sender: FDA-Public Use
  Company Number: US-GLAXOSMITHKLINE-A0980417A

PATIENT
  Age: 35 Year
  Sex: Female

DRUGS (2)
  1. IMITREX [Suspect]
     Indication: MIGRAINE
     Dosage: 50MG SINGLE DOSE
     Route: 048
  2. PRENATAL VITAMINS [Concomitant]

REACTIONS (2)
  - Exposure during pregnancy [Unknown]
  - Live birth [Unknown]
